FAERS Safety Report 17890540 (Version 2)
Quarter: 2020Q2

REPORT INFORMATION
  Report Type: Spontaneous
  Country: BG (occurrence: BG)
  Receive Date: 20200612
  Receipt Date: 20200617
  Transmission Date: 20200714
  Serious: Yes (Life-Threatening, Hospitalization, Other)
  Sender: FDA-Public Use
  Company Number: BG-AMGEN-BGRSP2020051724

PATIENT
  Age: 14 Year
  Sex: Female
  Weight: 50 kg

DRUGS (15)
  1. BLINCYTO [Suspect]
     Active Substance: BLINATUMOMAB
     Indication: ACUTE LYMPHOCYTIC LEUKAEMIA RECURRENT
     Dosage: 9 MICROGRAM/KILOGRAM FOR 7 DAYS
     Route: 042
     Dates: start: 20200313, end: 202003
  2. DESLORATADINE. [Concomitant]
     Active Substance: DESLORATADINE
     Dosage: 5 MILLIGRAM
  3. URSOFALK [Concomitant]
     Active Substance: URSODIOL
     Dosage: 250 MILLIGRAM
  4. METRONIDAZOLE. [Concomitant]
     Active Substance: METRONIDAZOLE
     Dosage: 3X500 MILLIGRAM
     Dates: start: 20200316, end: 20200322
  5. AMIKACIN. [Concomitant]
     Active Substance: AMIKACIN
     Dosage: 600 MILLIGRAM
  6. BISEPTOL [Concomitant]
     Active Substance: SULFAMETHOXAZOLE\TRIMETHOPRIM
  7. PARACETAMOL + CAFFEINE + PHENYLEPHRINE HYDROCHLORIDE + CHLORPHENIRAMIN [Concomitant]
  8. VANCOMYCIN [Concomitant]
     Active Substance: VANCOMYCIN
     Dosage: 4X500 MILLIGRAM
  9. NIVESTIM [Concomitant]
     Active Substance: FILGRASTIM
     Dosage: 250 MICROGRAM
  10. FUNGOLON [Concomitant]
     Dosage: 100 MILLIGRAM
  11. METHYLPREDNISOLONE. [Concomitant]
     Active Substance: METHYLPREDNISOLONE
  12. QUAMATEL [Concomitant]
     Active Substance: FAMOTIDINE
     Dosage: 2X20 MILLIGRAM
  13. BLINCYTO [Suspect]
     Active Substance: BLINATUMOMAB
     Dosage: 28 MICROGRAM/KILOGRAM FOR 21 DAYS
     Route: 042
     Dates: start: 20200320
  14. TAZOCIN [Concomitant]
     Active Substance: PIPERACILLIN SODIUM\TAZOBACTAM SODIUM
     Dosage: 3X4.5 GRAM
  15. DICYNONE [Concomitant]
     Active Substance: ETHAMSYLATE
     Dosage: 4X250 MILLIGRAM

REACTIONS (10)
  - Abdominal pain [Recovered/Resolved]
  - Weight increased [Unknown]
  - Febrile neutropenia [Recovered/Resolved]
  - Swelling [Unknown]
  - Myalgia [Recovered/Resolved]
  - Pyrexia [Recovered/Resolved]
  - White blood cell count decreased [Unknown]
  - Headache [Unknown]
  - Agranulocytosis [Unknown]
  - Cytokine release syndrome [Recovered/Resolved]

NARRATIVE: CASE EVENT DATE: 20200314
